FAERS Safety Report 13992646 (Version 2)
Quarter: 2018Q1

REPORT INFORMATION
  Report Type: Spontaneous
  Country: US (occurrence: US)
  Receive Date: 20170920
  Receipt Date: 20180118
  Transmission Date: 20180508
  Serious: No
  Sender: FDA-Public Use
  Company Number: US-JNJFOC-20170625059

PATIENT
  Age: 7 Year
  Sex: Male

DRUGS (1)
  1. METHYERTAB-A [Suspect]
     Active Substance: METHYLPHENIDATE HYDROCHLORIDE
     Indication: PRODUCT USED FOR UNKNOWN INDICATION
     Route: 065
     Dates: start: 20170616, end: 20170623

REACTIONS (3)
  - Wrong technique in product usage process [Unknown]
  - Product coating issue [Unknown]
  - Product use complaint [Unknown]
